FAERS Safety Report 6338864-7 (Version None)
Quarter: 2009Q3

REPORT INFORMATION
  Report Type: 
  Country: None (occurrence: None)
  Receive Date: 20090903
  Receipt Date: 20090824
  Transmission Date: 20100115
  Serious: Yes (Death, Other)
  Sender: FDA-Public Use
  Company Number: AT-CELGENEUS-009-21880-09082121

PATIENT
  Sex: Female

DRUGS (10)
  1. REVLIMID [Suspect]
     Route: 048
     Dates: start: 20090508, end: 20090601
  2. REVLIMID [Suspect]
     Route: 048
     Dates: start: 20090622, end: 20090727
  3. BERODUAL [Concomitant]
     Route: 065
  4. SERETIDE [Concomitant]
     Dosage: 1 PUFF
     Route: 065
  5. TRAMAL [Concomitant]
     Indication: PAIN
     Route: 065
  6. PSYCHOPAX [Concomitant]
     Indication: DRUG USE FOR UNKNOWN INDICATION
     Route: 065
  7. DILTIAZEM [Concomitant]
     Indication: ATRIAL FIBRILLATION
     Route: 065
  8. AQUAPHORIL [Concomitant]
     Route: 065
  9. FRAGMIN [Concomitant]
     Indication: THROMBOSIS PROPHYLAXIS
     Route: 058
     Dates: start: 20090508
  10. OXYGEN [Concomitant]
     Route: 065

REACTIONS (11)
  - ARTERIOSCLEROSIS CORONARY ARTERY [None]
  - COLON GANGRENE [None]
  - LARGE INTESTINAL HAEMORRHAGE [None]
  - LARGE INTESTINAL ULCER [None]
  - MYOCARDIAL CALCIFICATION [None]
  - NECROSIS [None]
  - PANCREATITIS ACUTE [None]
  - PULMONARY OEDEMA [None]
  - RENAL VEIN THROMBOSIS [None]
  - SEPTIC SHOCK [None]
  - THYROID DISORDER [None]
